FAERS Safety Report 21891376 (Version 1)
Quarter: 2023Q1

REPORT INFORMATION
  Report Type: Spontaneous
  Country: US (occurrence: US)
  Receive Date: 20230120
  Receipt Date: 20230120
  Transmission Date: 20230418
  Serious: Yes (Other)
  Sender: FDA-Public Use
  Company Number: US-UNITED THERAPEUTICS-UNT-2023-001026

PATIENT
  Age: 44 Year
  Sex: Male

DRUGS (4)
  1. TYVASO [Suspect]
     Active Substance: TREPROSTINIL
     Indication: Product used for unknown indication
     Dosage: UNK
  2. AMBRISENTAN [Concomitant]
     Active Substance: AMBRISENTAN
     Indication: Pulmonary hypertension
     Dosage: UNK
     Route: 065
  3. BUMETANIDE [Concomitant]
     Active Substance: BUMETANIDE
     Indication: Pulmonary hypertension
     Dosage: UNK
     Route: 065
  4. TADALAFIL [Concomitant]
     Active Substance: TADALAFIL
     Indication: Pulmonary hypertension
     Dosage: UNK
     Route: 065

REACTIONS (12)
  - Bone tuberculosis [Unknown]
  - Diplegia [Unknown]
  - Osteomyelitis [Unknown]
  - Myelopathy [Unknown]
  - Spinal cord compression [Unknown]
  - Pathological fracture [Unknown]
  - Spinal stenosis [Unknown]
  - Decubitus ulcer [Unknown]
  - Hyperreflexia [Unknown]
  - Hypoaesthesia [Unknown]
  - Anogenital warts [Unknown]
  - Balance disorder [Unknown]
